FAERS Safety Report 11695958 (Version 1)
Quarter: 2015Q4

REPORT INFORMATION
  Report Type: Spontaneous
  Country: US (occurrence: None)
  Receive Date: 20151103
  Receipt Date: 20151103
  Transmission Date: 20160304
  Serious: Yes (Other)
  Sender: FDA-Public Use
  Company Number: None

PATIENT
  Age: 72 Year
  Sex: Female
  Weight: 66.23 kg

DRUGS (10)
  1. ALLEGRA [Concomitant]
     Active Substance: FEXOFENADINE HYDROCHLORIDE
  2. VITAMIN B COMPLEX [Concomitant]
     Active Substance: CYANOCOBALAMIN\DEXPANTHENOL\NIACINAMIDE\PYRIDOXINE HYDROCHLORIDE\RIBOFLAVIN 5^-PHOSPHATE SODIUM\THIAMINE HYDROCHLORIDE\VITAMIN B COMPLEX
  3. PROBIOTIC OTC (PBB) LACTOBACILLUS 8 STRAINS [Concomitant]
  4. ATIVAN [Suspect]
     Active Substance: LORAZEPAM
     Indication: TRANSIENT ISCHAEMIC ATTACK
     Route: 042
     Dates: start: 20151027
  5. ASPIRIN. [Concomitant]
     Active Substance: ASPIRIN
  6. FLUTICASONE [Concomitant]
     Active Substance: FLUTICASONE\FLUTICASONE PROPIONATE
  7. ZYRTEC [Concomitant]
     Active Substance: CETIRIZINE HYDROCHLORIDE
  8. AZELASTINE [Concomitant]
     Active Substance: AZELASTINE
  9. DESIPRIMINE [Concomitant]
  10. CALTRATE CA TABLET 600 MG WITH D3 [Concomitant]

REACTIONS (4)
  - Memory impairment [None]
  - Coordination abnormal [None]
  - Urinary incontinence [None]
  - Urinary tract infection [None]

NARRATIVE: CASE EVENT DATE: 20151027
